FAERS Safety Report 10236086 (Version 1)
Quarter: 2014Q2

REPORT INFORMATION
  Report Type: Spontaneous
  Country: US (occurrence: US)
  Receive Date: 20140613
  Receipt Date: 20140613
  Transmission Date: 20141212
  Serious: No
  Sender: FDA-Public Use
  Company Number: US-009507513-1406USA001991

PATIENT
  Age: 30 Year
  Sex: Female

DRUGS (1)
  1. NUVARING [Suspect]
     Dosage: 3 WEEKS IN, 1 WEEK OUT,1 RING
     Route: 067
     Dates: start: 2010

REACTIONS (3)
  - Feeling abnormal [Unknown]
  - Abdominal pain [Unknown]
  - Product quality issue [Unknown]
